FAERS Safety Report 12646240 (Version 2)
Quarter: 2016Q4

REPORT INFORMATION
  Report Type: Spontaneous
  Country: US (occurrence: US)
  Receive Date: 20160811
  Receipt Date: 20161006
  Transmission Date: 20170207
  Serious: No
  Sender: FDA-Public Use
  Company Number: US-ASTRAZENECA-2016SE83681

PATIENT
  Sex: Male
  Weight: 54.4 kg

DRUGS (3)
  1. LEVOTHYROXENE [Concomitant]
     Indication: THYROID DISORDER
     Dosage: 50 ONCE A WEEK
     Route: 048
  2. LISONPRIL [Suspect]
     Active Substance: LISINOPRIL
     Indication: BLOOD PRESSURE ABNORMAL
     Route: 048
  3. BYDUREON [Suspect]
     Active Substance: EXENATIDE
     Indication: DIABETES MELLITUS
     Route: 058

REACTIONS (4)
  - Mass [Unknown]
  - Incorrect dose administered [Unknown]
  - Injection site pruritus [Unknown]
  - Product quality issue [Unknown]
